FAERS Safety Report 5944951-5 (Version None)
Quarter: 2008Q4

REPORT INFORMATION
  Report Type: 
  Country: None (occurrence: None)
  Receive Date: 20081107
  Receipt Date: 20081028
  Transmission Date: 20090506
  Serious: Yes (Death)
  Sender: FDA-Public Use
  Company Number: JP-ABBOTT-08P-087-0480254-00

PATIENT
  Age: 87 Year
  Sex: Male

DRUGS (7)
  1. LEUPROLIDE ACETATE [Suspect]
     Indication: PROSTATE CANCER STAGE IV
     Route: 058
     Dates: start: 20061003, end: 20061225
  2. BICALUTAMIDE [Concomitant]
     Indication: PROSTATE CANCER STAGE IV
     Route: 048
     Dates: start: 20060922, end: 20070806
  3. FLUTAMIDE [Concomitant]
     Indication: PROSTATE CANCER STAGE IV
     Route: 048
     Dates: start: 20070806, end: 20070907
  4. DEXAMETHASONE [Concomitant]
     Indication: PROSTATE CANCER STAGE IV
     Route: 048
     Dates: start: 20070907, end: 20080310
  5. TICLOPIDINE HYDROCHLORIDE [Concomitant]
     Indication: CEREBRAL INFARCTION
     Route: 048
     Dates: end: 20080310
  6. LOXOPROFEN [Concomitant]
     Indication: METASTATIC PAIN
     Route: 048
     Dates: start: 20070921, end: 20080311
  7. REBAMIPIDE [Concomitant]
     Indication: GASTRITIS PROPHYLAXIS
     Route: 048
     Dates: start: 20070921, end: 20080311

REACTIONS (1)
  - PROSTATE CANCER [None]
